FAERS Safety Report 9551793 (Version 1)
Quarter: 2013Q3

REPORT INFORMATION
  Report Type: Spontaneous
  Country: US (occurrence: None)
  Receive Date: 20130724
  Receipt Date: 20130724
  Transmission Date: 20140515
  Serious: Yes (Other)
  Sender: FDA-Public Use
  Company Number: PHEH2012US025564

PATIENT
  Sex: Female

DRUGS (2)
  1. DIOVAN HCT [Suspect]
     Dosage: 1 DF (320 MG VALS/12.5 MG HCTZ) UNK
  2. VALSARTAN + HCT [Suspect]

REACTIONS (3)
  - Blood pressure fluctuation [None]
  - Respiratory disorder [None]
  - Influenza [None]
